FAERS Safety Report 21705277 (Version 1)
Quarter: 2022Q4

REPORT INFORMATION
  Report Type: Spontaneous
  Country: US (occurrence: US)
  Receive Date: 20221209
  Receipt Date: 20221209
  Transmission Date: 20230113
  Serious: No
  Sender: FDA-Public Use
  Company Number: US-BRISTOL-MYERS SQUIBB COMPANY-2022-149167

PATIENT
  Age: 82 Year
  Sex: Female

DRUGS (2)
  1. POMALYST [Suspect]
     Active Substance: POMALIDOMIDE
     Indication: Plasma cell myeloma
     Dosage: ONCE DAILY FOR 21 DAYS ON AND 7 DAYS OFF
     Route: 048
     Dates: start: 202208, end: 20221128
  2. REVLIMID [Suspect]
     Active Substance: LENALIDOMIDE
     Indication: Plasma cell myeloma
     Dosage: 1 CAPSULE BY MOUTH ONCE DAILY 21 DAYS ON AND 7 DAYS OFF.
     Route: 048

REACTIONS (3)
  - Fatigue [Unknown]
  - Joint swelling [Unknown]
  - Decreased appetite [Unknown]
